FAERS Safety Report 8179319-7 (Version None)
Quarter: 2012Q1

REPORT INFORMATION
  Report Type: 
  Country: None (occurrence: None)
  Receive Date: 20120302
  Receipt Date: 20120220
  Transmission Date: 20120608
  Serious: Yes (Hospitalization)
  Sender: FDA-Public Use
  Company Number: FR-VERTEX PHARMACEUTICALS INC.-AE-2011-004004

PATIENT
  Sex: Male
  Weight: 80 kg

DRUGS (6)
  1. TRACLEER [Concomitant]
     Indication: PULMONARY ARTERIAL HYPERTENSION
     Route: 065
     Dates: start: 20090101, end: 20111118
  2. PEGASYS [Concomitant]
     Indication: HEPATITIS C
     Route: 058
     Dates: start: 20111030, end: 20111118
  3. COPEGUS [Concomitant]
     Indication: HEPATITIS C
     Route: 048
     Dates: start: 20111030, end: 20111118
  4. INCIVO (TELAPREVIR) [Suspect]
     Indication: HEPATITIS C
     Route: 048
     Dates: start: 20111030, end: 20111118
  5. IMODIUM [Concomitant]
     Indication: DIARRHOEA
     Route: 065
  6. TRUVADA [Concomitant]
     Indication: HIV INFECTION
     Route: 048
     Dates: start: 20090101

REACTIONS (11)
  - VERTIGO [None]
  - DRUG LEVEL INCREASED [None]
  - CONFUSIONAL STATE [None]
  - CEREBELLAR SYNDROME [None]
  - FALL [None]
  - DISORIENTATION [None]
  - ASTHENIA [None]
  - DRUG INTERACTION [None]
  - OFF LABEL USE [None]
  - NAUSEA [None]
  - BALANCE DISORDER [None]
